FAERS Safety Report 6878216-4 (Version None)
Quarter: 2010Q3

REPORT INFORMATION
  Report Type: 
  Country: None (occurrence: None)
  Receive Date: 20100728
  Receipt Date: 20100720
  Transmission Date: 20110219
  Serious: Yes (Other)
  Sender: FDA-Public Use
  Company Number: CZ-PFIZER INC-2010090263

PATIENT
  Age: 45 Year
  Sex: Female

DRUGS (1)
  1. SAYANA [Suspect]
     Dosage: UNK
     Dates: start: 20100101

REACTIONS (1)
  - INJECTION SITE ATROPHY [None]
